FAERS Safety Report 8521033-X (Version None)
Quarter: 2012Q3

REPORT INFORMATION
  Report Type: 
  Country: None (occurrence: None)
  Receive Date: 20120719
  Receipt Date: 20120712
  Transmission Date: 20120928
  Serious: Yes (Other)
  Sender: FDA-Public Use
  Company Number: US-009507513-1108USA00190

PATIENT

DRUGS (5)
  1. FOSAMAX [Suspect]
  2. FOSAMAX [Suspect]
     Route: 048
     Dates: start: 20090210, end: 20091001
  3. FOSAMAX [Suspect]
     Indication: OSTEOPOROSIS
  4. FOSAMAX [Suspect]
     Indication: OSTEOPENIA
     Route: 048
     Dates: end: 20091028
  5. HORMONES (UNSPECIFIED) [Concomitant]
     Dates: start: 19930501

REACTIONS (43)
  - LIP AND/OR ORAL CAVITY CANCER [None]
  - OSTEONECROSIS OF JAW [None]
  - IMPAIRED HEALING [None]
  - IMPAIRED GASTRIC EMPTYING [None]
  - SINUS TACHYCARDIA [None]
  - CHRONIC OBSTRUCTIVE PULMONARY DISEASE [None]
  - TOOTH INFECTION [None]
  - DEPRESSION [None]
  - LIP NEOPLASM [None]
  - IRRITABLE BOWEL SYNDROME [None]
  - LEUKOCYTOSIS [None]
  - OSTEOARTHRITIS [None]
  - INFECTION [None]
  - PAIN [None]
  - DRUG INTOLERANCE [None]
  - ROTATOR CUFF SYNDROME [None]
  - MOUTH INJURY [None]
  - BLOOD CHOLESTEROL INCREASED [None]
  - COLONIC POLYP [None]
  - ANXIETY [None]
  - WEIGHT DECREASED [None]
  - DRUG ABUSE [None]
  - GASTROOESOPHAGEAL REFLUX DISEASE [None]
  - NERVE COMPRESSION [None]
  - PERIODONTAL DISEASE [None]
  - ADVERSE DRUG REACTION [None]
  - BIPOLAR DISORDER [None]
  - GINGIVAL BLEEDING [None]
  - DYSPNOEA [None]
  - DRUG DEPENDENCE [None]
  - HYPERLIPIDAEMIA [None]
  - RHEUMATOID ARTHRITIS [None]
  - TOOTH DISORDER [None]
  - STOMATITIS [None]
  - MOUTH HAEMORRHAGE [None]
  - ALVEOLAR OSTEITIS [None]
  - PERIODONTITIS [None]
  - FIBROMYALGIA [None]
  - TOOTH FRACTURE [None]
  - INTERVERTEBRAL DISC DEGENERATION [None]
  - SENSITIVITY OF TEETH [None]
  - RASH [None]
  - AMNESIA [None]
